FAERS Safety Report 12051243 (Version 1)
Quarter: 2016Q1

REPORT INFORMATION
  Report Type: Spontaneous
  Country: US (occurrence: None)
  Receive Date: 20160208
  Receipt Date: 20160208
  Transmission Date: 20160526
  Serious: Yes (Life-Threatening)
  Sender: FDA-Public Use
  Company Number: None

PATIENT
  Age: 75 Year
  Sex: Male
  Weight: 86.18 kg

DRUGS (7)
  1. COUMADIN [Concomitant]
     Active Substance: WARFARIN SODIUM
  2. CARDEVILOL 6.25 MG DR. REDDY [Suspect]
     Active Substance: CARVEDILOL
     Indication: BLOOD PRESSURE MEASUREMENT
     Dosage: 1 PILL TWICE DAILY TAKEN BY MOUTH
     Route: 048
  3. LIPITOR [Concomitant]
     Active Substance: ATORVASTATIN CALCIUM
  4. COREG [Concomitant]
     Active Substance: CARVEDILOL
  5. ASPIRIN. [Concomitant]
     Active Substance: ASPIRIN
  6. ATACAND [Concomitant]
     Active Substance: CANDESARTAN CILEXETIL
  7. NIASPAN [Concomitant]
     Active Substance: NIACIN

REACTIONS (2)
  - Arrhythmia [None]
  - Product substitution issue [None]
